FAERS Safety Report 8833695 (Version 2)
Quarter: 2014Q2

REPORT INFORMATION
  Report Type: Report from Study
  Country: US (occurrence: US)
  Receive Date: 20121010
  Receipt Date: 20131105
  Transmission Date: 20141212
  Serious: Yes (Death)
  Sender: FDA-Public Use
  Company Number: US-ROCHE-1143618

PATIENT
  Sex: Female

DRUGS (8)
  1. AVASTIN [Suspect]
     Indication: OVARIAN CANCER
     Route: 042
     Dates: start: 20110426
  2. AVASTIN [Suspect]
     Route: 065
     Dates: start: 20110629
  3. FAMOTIDINE [Concomitant]
     Route: 065
     Dates: start: 20120124
  4. MEPERIDINE [Concomitant]
     Route: 065
     Dates: start: 20120221
  5. ONDANSETRON [Concomitant]
     Route: 065
     Dates: start: 20110629
  6. DEXAMETHASONE [Concomitant]
     Route: 065
     Dates: start: 20110629
  7. DOXIL (UNITED STATES) [Concomitant]
     Route: 065
     Dates: start: 20111025
  8. LORATADINE [Concomitant]
     Route: 065
     Dates: start: 20110810

REACTIONS (1)
  - Death [Fatal]
